FAERS Safety Report 24970898 (Version 1)
Quarter: 2025Q1

REPORT INFORMATION
  Report Type: Spontaneous
  Country: JP (occurrence: JP)
  Receive Date: 20250214
  Receipt Date: 20250214
  Transmission Date: 20250408
  Serious: Yes (Death, Other)
  Sender: ASTELLAS
  Company Number: JP-ASTELLAS-2025-AER-003948

PATIENT
  Age: 9 Decade
  Sex: Male

DRUGS (1)
  1. VYLOY [Suspect]
     Active Substance: ZOLBETUXIMAB-CLZB
     Indication: Gastric cancer stage IV
     Route: 042
     Dates: start: 20240919

REACTIONS (5)
  - Death [Fatal]
  - Pleural effusion [Fatal]
  - Liver function test increased [Fatal]
  - Decreased appetite [Not Recovered/Not Resolved]
  - Tumour marker increased [Unknown]
